FAERS Safety Report 15536417 (Version 2)
Quarter: 2018Q4

REPORT INFORMATION
  Report Type: Report from Study
  Country: ES (occurrence: ES)
  Receive Date: 20181022
  Receipt Date: 20181029
  Transmission Date: 20190205
  Serious: Yes (Other)
  Sender: FDA-Public Use
  Company Number: ES-SA-2018SA290578

PATIENT
  Age: 42 Year
  Sex: Female
  Weight: 66.3 kg

DRUGS (3)
  1. TERIFLUNOMIDE. [Suspect]
     Active Substance: TERIFLUNOMIDE
     Indication: MULTIPLE SCLEROSIS
     Dosage: 14 MG, QD
     Route: 048
     Dates: start: 20170113
  2. IRON SULFATE [Concomitant]
     Active Substance: FERROUS SULFATE ANHYDROUS
     Indication: MENORRHAGIA
     Dosage: 256 U, QD
     Dates: start: 20170822
  3. OMEPRAZOLE. [Concomitant]
     Active Substance: OMEPRAZOLE
     Indication: ABDOMINAL PAIN UPPER
     Dosage: 20 U
     Dates: start: 20170508, end: 20180322

REACTIONS (15)
  - Neck pain [Not Recovered/Not Resolved]
  - Dizziness [Not Recovered/Not Resolved]
  - Palpitations [Recovered/Resolved]
  - Headache [Recovered/Resolved]
  - Headache [Recovered/Resolved]
  - Photopsia [Recovered/Resolved]
  - Insomnia [Recovered/Resolved]
  - Sinus tachycardia [Not Recovered/Not Resolved]
  - Dysarthria [Not Recovered/Not Resolved]
  - Pain in extremity [Recovered/Resolved]
  - Dizziness [Recovered/Resolved]
  - Pain in extremity [Recovered/Resolved]
  - Paraesthesia [Not Recovered/Not Resolved]
  - Palpitations [Not Recovered/Not Resolved]
  - Muscular weakness [Not Recovered/Not Resolved]

NARRATIVE: CASE EVENT DATE: 20171201
